FAERS Safety Report 4607039-1 (Version None)
Quarter: 2005Q1

REPORT INFORMATION
  Report Type: 
  Country: None (occurrence: None)
  Receive Date: 20050309
  Receipt Date: 20050222
  Transmission Date: 20050727
  Serious: Yes (Other)
  Sender: FDA-Public Use
  Company Number: US_0502113254

PATIENT
  Age: 37 Year
  Sex: Female
  Weight: 80 kg

DRUGS (9)
  1. HUMATROPE [Suspect]
     Indication: GROWTH HORMONE DEFICIENCY
     Dosage: 0.5 MG/ 1 DAY
     Dates: start: 20020601, end: 20050221
  2. SYNTHROID [Concomitant]
  3. PREDNISONE [Concomitant]
  4. ESTRADIOL [Concomitant]
  5. PROMETHRIUM (PROGESTERONE) [Concomitant]
  6. OXYCONTIN [Concomitant]
  7. CLARINEX [Concomitant]
  8. PROTONIX [Concomitant]
  9. VALTREX [Concomitant]

REACTIONS (1)
  - BREAST CANCER STAGE II [None]
